FAERS Safety Report 5245451-0 (Version None)
Quarter: 2007Q1

REPORT INFORMATION
  Report Type: 
  Country: None (occurrence: None)
  Receive Date: 20070223
  Receipt Date: 20070215
  Transmission Date: 20070707
  Serious: Yes (Hospitalization)
  Sender: FDA-Public Use
  Company Number: IT-ELI_LILLY_AND_COMPANY-IT200601001257

PATIENT
  Age: 70 Year
  Sex: Male

DRUGS (4)
  1. ALIMTA [Suspect]
     Indication: NON-SMALL CELL LUNG CANCER METASTATIC
     Dosage: 1000 MG, DAILY (1/D)
     Route: 042
     Dates: start: 20051227, end: 20051227
  2. FOLIC ACID [Concomitant]
     Indication: PREMEDICATION
     Dosage: 400 MG, UNK
     Route: 048
     Dates: start: 20051220
  3. VITAMIN B-12 [Concomitant]
     Indication: PREMEDICATION
     Dates: start: 20051220
  4. DEXAMETHASONE [Concomitant]
     Indication: PREMEDICATION
     Dates: start: 20051226, end: 20051228

REACTIONS (1)
  - MYOCARDIAL INFARCTION [None]
